FAERS Safety Report 6329704-0 (Version None)
Quarter: 2009Q3

REPORT INFORMATION
  Report Type: 
  Country: None (occurrence: None)
  Receive Date: 20090826
  Receipt Date: 20090813
  Transmission Date: 20100115
  Serious: Yes (Life-Threatening, Hospitalization, Disabling, Other)
  Sender: FDA-Public Use
  Company Number: GB-MYLANLABS-2009S1014529

PATIENT
  Age: 28 Year
  Weight: 74 kg

DRUGS (3)
  1. VALPROATE SODIUM [Suspect]
     Indication: BIPOLAR DISORDER
     Dates: start: 20060707
  2. OLANZAPINE [Concomitant]
     Indication: BIPOLAR DISORDER
     Route: 048
     Dates: start: 20060721
  3. PROMAZINE HYDROCHLORIDE [Concomitant]
     Indication: DRUG USE FOR UNKNOWN INDICATION
     Dates: start: 20060721

REACTIONS (1)
  - RENAL DISORDER [None]
